FAERS Safety Report 9099193 (Version 3)
Quarter: 2013Q3

REPORT INFORMATION
  Report Type: Report from Study
  Country: FR (occurrence: FR)
  Receive Date: 20130213
  Receipt Date: 20130829
  Transmission Date: 20140515
  Serious: Yes (Hospitalization)
  Sender: FDA-Public Use
  Company Number: FR-PFIZER INC-2013051007

PATIENT
  Age: 70 Year
  Sex: Male
  Weight: 60 kg

DRUGS (6)
  1. TORISEL [Suspect]
     Dosage: 175 MG, WEEKLY
     Dates: start: 20100915, end: 20100915
  2. VFEND [Concomitant]
     Indication: ASPERGILLUS INFECTION
     Dosage: 20 UNK, UNK
     Route: 048
     Dates: start: 2009
  3. LEVOTHYROX [Concomitant]
     Indication: HYPOTHYROIDISM
     Dosage: 75 UNK, UNK
     Route: 048
     Dates: start: 1998
  4. BISOPROLOL [Concomitant]
     Dosage: UNK
     Route: 048
  5. DAFALGAN [Concomitant]
     Indication: ANALGESIC THERAPY
     Dosage: UNK
     Route: 048
  6. INEXIUM [Concomitant]
     Dosage: UNK
     Route: 048

REACTIONS (2)
  - Interstitial lung disease [Not Recovered/Not Resolved]
  - Lung infection [Not Recovered/Not Resolved]
